FAERS Safety Report 4283220-9 (Version None)
Quarter: 2004Q1

REPORT INFORMATION
  Report Type: 
  Country: None (occurrence: None)
  Receive Date: 20040129
  Receipt Date: 20040119
  Transmission Date: 20041129
  Serious: Yes (Death, Life-Threatening)
  Sender: FDA-Public Use
  Company Number: 2004AP00014

PATIENT
  Age: 63 Year
  Sex: Male

DRUGS (17)
  1. IRESSA [Suspect]
     Indication: NON-SMALL CELL LUNG CANCER RECURRENT
     Dosage: 250 MG DAILY PO
     Route: 048
     Dates: start: 20031225, end: 20031230
  2. ADONA [Concomitant]
  3. TRANSAMIN [Concomitant]
  4. MEROPEN [Concomitant]
  5. PORTACOL [Concomitant]
  6. HEPARIN [Concomitant]
  7. BROCIN-CODEINE [Concomitant]
  8. KAYTWO [Concomitant]
  9. ADONA [Concomitant]
  10. TRANSAMIN [Concomitant]
  11. MUCODYNE [Concomitant]
  12. PROTECADIN [Concomitant]
  13. LENDORM [Concomitant]
  14. NO MATCH [Concomitant]
  15. CISPLATIN [Concomitant]
  16. GEMCITABINE [Concomitant]
  17. PACLITAXEL [Concomitant]

REACTIONS (11)
  - CHEST X-RAY ABNORMAL [None]
  - CONDITION AGGRAVATED [None]
  - DYSPNOEA [None]
  - HAEMOPTYSIS [None]
  - HYPOXIA [None]
  - LUNG DISORDER [None]
  - LUNG NEOPLASM MALIGNANT [None]
  - METASTASES TO ADRENALS [None]
  - METASTASES TO LYMPH NODES [None]
  - PNEUMONIA [None]
  - PULMONARY FIBROSIS [None]
